FAERS Safety Report 6485115-9 (Version None)
Quarter: 2009Q4

REPORT INFORMATION
  Report Type: 
  Country: None (occurrence: None)
  Receive Date: 20091209
  Receipt Date: 20091207
  Transmission Date: 20100525
  Serious: Yes (Death, Other)
  Sender: FDA-Public Use
  Company Number: HQWYE195116JUL04

PATIENT
  Sex: Female
  Weight: 44.49 kg

DRUGS (5)
  1. PREMPRO [Suspect]
     Indication: HORMONE REPLACEMENT THERAPY
     Dosage: UNKNOWN
     Dates: start: 19980101, end: 19980101
  2. ACTONEL [Concomitant]
  3. OSCAL [Concomitant]
  4. PREMARIN [Suspect]
     Dosage: UNKNOWN
     Dates: start: 19970101, end: 19970101
  5. ATENOLOL [Concomitant]
     Dosage: 50 MG - 1/2 TABLET DAILY

REACTIONS (1)
  - BREAST CANCER METASTATIC [None]
